FAERS Safety Report 12010137 (Version 1)
Quarter: 2016Q1

REPORT INFORMATION
  Report Type: Other
  Country: IT (occurrence: IT)
  Receive Date: 20160205
  Receipt Date: 20160205
  Transmission Date: 20160526
  Serious: Yes (Other)
  Sender: FDA-Public Use
  Company Number: IT-MYLANLABS-2016M1004270

PATIENT

DRUGS (2)
  1. DIAZEPAM. [Suspect]
     Active Substance: DIAZEPAM
     Indication: AGITATION
     Dosage: UNK
     Dates: start: 20160101
  2. TACHIDOL [Suspect]
     Active Substance: ACETAMINOPHEN\CODEINE PHOSPHATE
     Indication: TENDERNESS
     Dosage: UNK
     Dates: start: 20160101

REACTIONS (4)
  - Unresponsive to stimuli [Recovering/Resolving]
  - Sopor [Recovering/Resolving]
  - Renal function test abnormal [Unknown]
  - Atrial fibrillation [Unknown]

NARRATIVE: CASE EVENT DATE: 20160119
